FAERS Safety Report 8885017 (Version 2)
Quarter: 2012Q4

REPORT INFORMATION
  Report Type: 
  Country: US (occurrence: US)
  Receive Date: 20121102
  Receipt Date: 20121114
  Transmission Date: 20130627
  Serious: Yes (Hospitalization)
  Sender: FDA-Public Use
  Company Number: US-ACTELION-A-US2012-72341

PATIENT
  Age: 70 Year
  Sex: Female

DRUGS (3)
  1. VELETRI [Suspect]
     Indication: PULMONARY ARTERIAL HYPERTENSION
     Dosage: 60 ng/kg, per min
     Route: 042
     Dates: start: 20110416
  2. TRACLEER [Concomitant]
     Indication: PULMONARY ARTERIAL HYPERTENSION
     Dosage: UNK
     Route: 048
  3. ASPIRIN [Concomitant]

REACTIONS (4)
  - Procedural complication [Unknown]
  - Hip surgery [Unknown]
  - Hip fracture [Unknown]
  - Fall [Unknown]
